FAERS Safety Report 4304069-4 (Version None)
Quarter: 2004Q1

REPORT INFORMATION
  Report Type: 
  Country: None (occurrence: None)
  Receive Date: 20040223
  Receipt Date: 20040102
  Transmission Date: 20041129
  Serious: No
  Sender: FDA-Public Use
  Company Number: PHEH2004US00510

PATIENT
  Age: 19 Year
  Sex: Female

DRUGS (1)
  1. ZELNORM [Suspect]
     Indication: IRRITABLE BOWEL SYNDROME
     Dosage: 2 MG, BID

REACTIONS (2)
  - DRUG INEFFECTIVE [None]
  - IMPAIRED GASTRIC EMPTYING [None]
